FAERS Safety Report 6700087-7 (Version None)
Quarter: 2010Q2

REPORT INFORMATION
  Report Type: 
  Country: None (occurrence: None)
  Receive Date: 20100427
  Receipt Date: 20100427
  Transmission Date: 20101027
  Serious: Yes (Life-Threatening, Hospitalization)
  Sender: FDA-Public Use
  Company Number: None

PATIENT
  Age: 25 Year
  Sex: Female
  Weight: 54.8852 kg

DRUGS (1)
  1. CHANTIX [Suspect]
     Dates: start: 20100315, end: 20100422

REACTIONS (3)
  - ABNORMAL BEHAVIOUR [None]
  - COMPLETED SUICIDE [None]
  - RASH [None]
